FAERS Safety Report 7689515-0 (Version None)
Quarter: 2011Q3

REPORT INFORMATION
  Report Type: 
  Country: None (occurrence: None)
  Receive Date: 20110817
  Receipt Date: 20110714
  Transmission Date: 20111222
  Serious: Yes (Other)
  Sender: FDA-Public Use
  Company Number: US-TYCO HEALTHCARE/MALLINCKRODT-T201100749

PATIENT
  Age: 54 Year
  Sex: Female

DRUGS (1)
  1. FENTANYL-100 [Suspect]
     Indication: PAIN
     Dosage: 100MCG Q 72 HRS
     Route: 061
     Dates: start: 20110406, end: 20110410

REACTIONS (2)
  - WITHDRAWAL SYNDROME [None]
  - DRUG INEFFECTIVE [None]
